FAERS Safety Report 9222550 (Version 3)
Quarter: 2013Q3

REPORT INFORMATION
  Report Type: Spontaneous
  Country: US (occurrence: US)
  Receive Date: 20130410
  Receipt Date: 20130909
  Transmission Date: 20140515
  Serious: Yes (Hospitalization, Disabling, Other)
  Sender: FDA-Public Use
  Company Number: US-009507513-1304USA002624

PATIENT
  Sex: Female

DRUGS (3)
  1. PRINIVIL [Suspect]
     Dosage: UNK UNK, QD
     Route: 048
     Dates: start: 201204
  2. THYROID [Concomitant]
  3. ASPIRIN [Concomitant]

REACTIONS (12)
  - Walking aid user [Recovered/Resolved]
  - Hearing impaired [Recovered/Resolved]
  - Drug ineffective [Unknown]
  - Balance disorder [Recovered/Resolved]
  - Cardiac disorder [Recovered/Resolved]
  - Feeling abnormal [Recovered/Resolved]
  - Asthenia [Recovered/Resolved]
  - Discomfort [Recovered/Resolved]
  - Impaired work ability [Recovered/Resolved]
  - Malaise [Recovered/Resolved]
  - Abasia [Recovered/Resolved]
  - Dysstasia [Recovered/Resolved]
